FAERS Safety Report 8295073 (Version 2)
Quarter: 2013Q2

REPORT INFORMATION
  Report Type: Spontaneous
  Country: US (occurrence: None)
  Receive Date: 20111122
  Receipt Date: 20130107
  Transmission Date: 20140414
  Serious: No
  Sender: FDA-Public Use
  Company Number: PHHY2011US56663

PATIENT
  Age: 59 Year
  Sex: Female

DRUGS (1)
  1. GILENYA (FTY) CAPSULE 0.5MG [Suspect]
     Indication: MULTIPLE SCLEROSIS
     Dosage: 0.5 MG, QD, ORAL
     Route: 048
     Dates: start: 20110620

REACTIONS (7)
  - BACK PAIN [None]
  - Feeling abnormal [None]
  - Multiple sclerosis relapse [None]
  - Hypoaesthesia [None]
  - Diplopia [None]
  - Gait disturbance [None]
  - Balance disorder [None]
